FAERS Safety Report 18139746 (Version 1)
Quarter: 2020Q3

REPORT INFORMATION
  Report Type: Spontaneous
  Country: US (occurrence: US)
  Receive Date: 20200811
  Receipt Date: 20200811
  Transmission Date: 20201103
  Serious: No
  Sender: FDA-Public Use
  Company Number: None

PATIENT
  Age: 3 Year
  Sex: Female

DRUGS (3)
  1. TOPIRAMATE. [Concomitant]
     Active Substance: TOPIRAMATE
  2. VIGABATRIN. [Suspect]
     Active Substance: VIGABATRIN
     Indication: PARTIAL SEIZURES
     Route: 048
     Dates: start: 20200130
  3. EPIDIOLEX [Concomitant]
     Active Substance: CANNABIDIOL

REACTIONS (2)
  - Atonic seizures [None]
  - Visual impairment [None]

NARRATIVE: CASE EVENT DATE: 20200810
